FAERS Safety Report 5085454-2 (Version None)
Quarter: 2006Q3

REPORT INFORMATION
  Report Type: 
  Country: None (occurrence: None)
  Receive Date: 20060816
  Receipt Date: 20060806
  Transmission Date: 20061208
  Serious: No
  Sender: FDA-Public Use
  Company Number: 2006-145744-NL

PATIENT
  Age: 64 Year
  Sex: Female

DRUGS (5)
  1. MIRTAZAPINE [Suspect]
     Indication: DEPRESSION
     Dosage: 30 MG, ORAL
     Route: 048
     Dates: start: 20050915
  2. PHENYTOIN SODIUM [Suspect]
     Indication: CONVULSION
     Dosage: 330 MG
     Dates: start: 20020615
  3. LEVOTHYROXINE SODIUM [Concomitant]
  4. PRAVASTATIN SODIUM [Concomitant]
  5. HYDROCORTISONE [Concomitant]

REACTIONS (3)
  - ANTICONVULSANT DRUG LEVEL DECREASED [None]
  - CONVULSION [None]
  - DRUG INTERACTION [None]
